FAERS Safety Report 7761256-0 (Version None)
Quarter: 2011Q3

REPORT INFORMATION
  Report Type: 
  Country: None (occurrence: None)
  Receive Date: 20110915
  Receipt Date: 20110912
  Transmission Date: 20111222
  Serious: Yes (Other)
  Sender: FDA-Public Use
  Company Number: 2011SP040841

PATIENT
  Age: 24 Year
  Sex: Male

DRUGS (3)
  1. REMERON [Suspect]
     Indication: PRODUCT USED FOR UNKNOWN INDICATION
     Dosage: 15;30 MG, QD
     Dates: start: 20050101
  2. REMERON [Suspect]
     Indication: PRODUCT USED FOR UNKNOWN INDICATION
     Dosage: 15;30 MG, QD
     Dates: start: 20050101
  3. QUETIAPINE [Concomitant]

REACTIONS (5)
  - LOSS OF CONSCIOUSNESS [None]
  - NAUSEA [None]
  - GRAND MAL CONVULSION [None]
  - HYPOTONIA [None]
  - VOMITING [None]
